FAERS Safety Report 7352314-3 (Version None)
Quarter: 2011Q1

REPORT INFORMATION
  Report Type: 
  Country: None (occurrence: None)
  Receive Date: 20110315
  Receipt Date: 20100909
  Transmission Date: 20110831
  Serious: Yes (Other)
  Sender: FDA-Public Use
  Company Number: US-BAYER-201019754NA

PATIENT
  Sex: Female
  Weight: 113 kg

DRUGS (3)
  1. YAZ [Suspect]
     Indication: PRODUCT USED FOR UNKNOWN INDICATION
     Route: 048
  2. OCELLA [Suspect]
     Dosage: UNK
     Dates: start: 20080720, end: 20091101
  3. YASMIN [Suspect]
     Dosage: UNK
     Route: 048
     Dates: start: 20070617, end: 20080608

REACTIONS (1)
  - CHOLELITHIASIS [None]
